FAERS Safety Report 5011488-X (Version None)
Quarter: 2006Q2

REPORT INFORMATION
  Report Type: 
  Country: None (occurrence: None)
  Receive Date: 20060524
  Receipt Date: 20060518
  Transmission Date: 20061013
  Serious: Yes (Life-Threatening)
  Sender: FDA-Public Use
  Company Number: 2006-141740-NL

PATIENT
  Age: 84 Year
  Sex: Female

DRUGS (1)
  1. VECURONIUM BROMIDE [Suspect]
     Indication: MUSCLE RELAXANT THERAPY

REACTIONS (2)
  - ATELECTASIS [None]
  - BRONCHIAL OBSTRUCTION [None]
